FAERS Safety Report 6686024-2 (Version None)
Quarter: 2010Q2

REPORT INFORMATION
  Report Type: 
  Country: None (occurrence: None)
  Receive Date: 20100415
  Receipt Date: 20100415
  Transmission Date: 20101027
  Serious: Yes (Other)
  Sender: FDA-Public Use
  Company Number: None

PATIENT
  Sex: Female
  Weight: 69 kg

DRUGS (2)
  1. PROMETHAZINE [Suspect]
     Indication: NAUSEA
     Dosage: 25MG Q4H IV
     Route: 042
     Dates: start: 20091224, end: 20100114
  2. PROMETHAZINE [Suspect]
     Indication: VOMITING
     Dosage: 25MG Q4H IV
     Route: 042
     Dates: start: 20091224, end: 20100114

REACTIONS (1)
  - DYSTONIA [None]
